FAERS Safety Report 8473986-6 (Version None)
Quarter: 2012Q2

REPORT INFORMATION
  Report Type: 
  Country: None (occurrence: None)
  Receive Date: 20120628
  Receipt Date: 20120503
  Transmission Date: 20120825
  Serious: Yes (Other)
  Sender: FDA-Public Use
  Company Number: US-MYLANLABS-2012S1005161

PATIENT
  Age: 51 Year
  Sex: Male
  Weight: 99.79 kg

DRUGS (22)
  1. CLOZAPINE [Suspect]
     Indication: SCHIZOPHRENIA
     Route: 048
     Dates: start: 20101001, end: 20120131
  2. CLOZAPINE [Suspect]
     Route: 048
     Dates: start: 20120223, end: 20120320
  3. FOLIC ACID [Concomitant]
     Route: 048
     Dates: start: 20100622
  4. DIVALPROEX SODIUM [Concomitant]
     Route: 048
     Dates: start: 20100825, end: 20120131
  5. PSYLLIUM /01328801/ [Concomitant]
     Route: 048
     Dates: start: 20120223
  6. CLOZAPINE [Suspect]
     Route: 048
     Dates: start: 20081001
  7. CLOZAPINE [Suspect]
     Route: 048
     Dates: start: 20081001
  8. STOOL SOFTENER [Concomitant]
     Route: 048
     Dates: start: 20110328, end: 20110404
  9. RANITIDINE [Concomitant]
     Route: 048
     Dates: start: 20120222
  10. LACTULOSE [Concomitant]
     Route: 048
     Dates: start: 20120223
  11. ANTIFUNGALS [Suspect]
  12. TRAZODONE HCL [Concomitant]
     Route: 048
     Dates: start: 20120412
  13. BISACODYL [Concomitant]
     Dates: start: 20100622, end: 20120130
  14. CLOZAPINE [Suspect]
     Indication: SCHIZOAFFECTIVE DISORDER
     Route: 048
     Dates: start: 20101001, end: 20120131
  15. ASPIRIN [Concomitant]
     Route: 048
     Dates: start: 20100817, end: 20101020
  16. VITAMIN B COMPLEX CAP [Concomitant]
     Route: 048
     Dates: start: 20120223
  17. CALCIUM PLUS VITAMIN D [Concomitant]
     Route: 048
     Dates: start: 20120222
  18. ASCORBIC ACID [Concomitant]
     Route: 048
     Dates: start: 20120223
  19. POLYETHYLENE GLYCOL [Concomitant]
     Route: 048
     Dates: start: 20120222
  20. INFLUENZA [Concomitant]
     Dosage: INJECTION
     Dates: start: 20111004, end: 20111004
  21. CLOZAPINE [Suspect]
     Route: 048
     Dates: start: 20120223, end: 20120320
  22. LORAZEPAM [Concomitant]
     Dosage: INJECTION
     Dates: start: 20110328, end: 20110328

REACTIONS (1)
  - GRANULOCYTOPENIA [None]
